FAERS Safety Report 6218129-4 (Version None)
Quarter: 2009Q2

REPORT INFORMATION
  Report Type: 
  Country: None (occurrence: None)
  Receive Date: 20090608
  Receipt Date: 20090603
  Transmission Date: 20091009
  Serious: Yes (Death, Hospitalization, Other)
  Sender: FDA-Public Use
  Company Number: PHHY2009GB03381

PATIENT
  Sex: Male

DRUGS (3)
  1. ZOMETA [Suspect]
     Indication: METASTASES TO BONE
     Dosage: UNK
     Dates: start: 20090101
  2. HORMONES NOS [Suspect]
     Dosage: UNK
     Dates: start: 20090112
  3. RADIOTHERAPY [Concomitant]
     Indication: PALLIATIVE CARE

REACTIONS (6)
  - DYSPNOEA [None]
  - MALAISE [None]
  - PROSTATE CANCER METASTATIC [None]
  - SEPSIS [None]
  - SEPTIC SHOCK [None]
  - URINARY TRACT INFECTION [None]
